FAERS Safety Report 8463718-X (Version None)
Quarter: 2012Q2

REPORT INFORMATION
  Report Type: 
  Country: None (occurrence: None)
  Receive Date: 20120625
  Receipt Date: 20120508
  Transmission Date: 20120825
  Serious: Yes (Other)
  Sender: FDA-Public Use
  Company Number: CHPA2012US001099

PATIENT
  Age: 52 Year
  Sex: Female

DRUGS (3)
  1. DRUG THERAPY NOS [Concomitant]
     Indication: HEADACHE
     Dosage: UNK
  2. IBUPROFEN (ADVIL) [Concomitant]
     Dosage: UNK
  3. EXCEDRIN (MIGRAINE) [Suspect]
     Indication: HEADACHE
     Dosage: 2 DF, QOD PRN
     Route: 048
     Dates: start: 20100101, end: 20120111

REACTIONS (18)
  - EPISTAXIS [None]
  - DISEASE RECURRENCE [None]
  - HEADACHE [None]
  - MALAISE [None]
  - OVERDOSE [None]
  - HAEMOPTYSIS [None]
  - DIARRHOEA [None]
  - FRUSTRATION [None]
  - WEIGHT DECREASED [None]
  - ABDOMINAL DISCOMFORT [None]
  - VOMITING [None]
  - FEAR [None]
  - CHEST PAIN [None]
  - NAUSEA [None]
  - DIZZINESS [None]
  - GASTROOESOPHAGEAL REFLUX DISEASE [None]
  - PAIN IN EXTREMITY [None]
  - ABDOMINAL PAIN LOWER [None]
